FAERS Safety Report 7395581-2 (Version None)
Quarter: 2011Q2

REPORT INFORMATION
  Report Type: 
  Country: None (occurrence: None)
  Receive Date: 20110405
  Receipt Date: 20110331
  Transmission Date: 20111010
  Serious: Yes (Hospitalization, Other)
  Sender: FDA-Public Use
  Company Number: PHHO2011FR05409

PATIENT
  Sex: Male
  Weight: 86 kg

DRUGS (7)
  1. AFINITOR [Suspect]
     Indication: METASTATIC RENAL CELL CARCINOMA
     Dosage: 10 MG, UNK
     Route: 048
     Dates: start: 20110128, end: 20110316
  2. TAREG [Concomitant]
     Indication: HYPERTENSION
     Dosage: 80 MG, UNK
  3. SINGULAIR [Concomitant]
     Indication: ASTHMA
     Dosage: 10 MG, UNK
  4. LIPANTHYL [Concomitant]
     Indication: MEDICAL DIET
     Dosage: UNK
     Dates: start: 20110312
  5. AUGMENTIN [Concomitant]
     Indication: INFECTION PROPHYLAXIS
     Dosage: 125 MG, UNK
     Dates: end: 20110101
  6. COTAREG [Concomitant]
     Indication: HYPERTENSION
     Dosage: 160 MG, UNK
     Dates: start: 19700101, end: 20110224
  7. LANTUS [Concomitant]
     Indication: HYPERGLYCAEMIA
     Dosage: 30 IU, UNK
     Dates: start: 20110312

REACTIONS (7)
  - LUNG INFECTION [None]
  - PYREXIA [None]
  - HYPERGLYCAEMIA [None]
  - HAEMOPTYSIS [None]
  - CEREBRAL HAEMORRHAGE [None]
  - RESPIRATION ABNORMAL [None]
  - NEOPLASM MALIGNANT [None]
